FAERS Safety Report 5410362-4 (Version None)
Quarter: 2007Q3

REPORT INFORMATION
  Report Type: 
  Country: None (occurrence: None)
  Receive Date: 20070808
  Receipt Date: 20070727
  Transmission Date: 20080115
  Serious: Yes (Hospitalization)
  Sender: FDA-Public Use
  Company Number: 062-20785-07080124

PATIENT
  Age: 68 Year
  Sex: Female

DRUGS (1)
  1. THALOMID [Suspect]
     Indication: MULTIPLE MYELOMA
     Dosage: 400 MG, 8 IN 1 D
     Dates: start: 20070521

REACTIONS (2)
  - SYNCOPE [None]
  - UNEVALUABLE EVENT [None]
